FAERS Safety Report 8734704 (Version 3)
Quarter: 2014Q2

REPORT INFORMATION
  Report Type: Spontaneous
  Country: GB (occurrence: GB)
  Receive Date: 20120821
  Receipt Date: 20140501
  Transmission Date: 20141212
  Serious: Yes (Death, Other)
  Sender: FDA-Public Use
  Company Number: PHHY2012GB071763

PATIENT
  Age: 16 Year
  Sex: Female

DRUGS (3)
  1. METHADONE [Suspect]
  2. DOSULEPIN [Suspect]
  3. ALCOHOL [Suspect]

REACTIONS (3)
  - Completed suicide [Fatal]
  - Toxicity to various agents [Fatal]
  - Drug level increased [Unknown]
